FAERS Safety Report 8561502-X (Version None)
Quarter: 2012Q3

REPORT INFORMATION
  Report Type: 
  Country: None (occurrence: None)
  Receive Date: 20120802
  Receipt Date: 20120725
  Transmission Date: 20120928
  Serious: Yes (Other)
  Sender: FDA-Public Use
  Company Number: US-JNJFOC-20120715228

PATIENT

DRUGS (1)
  1. REMICADE [Suspect]
     Indication: PRODUCT USED FOR UNKNOWN INDICATION
     Dosage: ON REMICADE FOR 4 YEARS
     Route: 042

REACTIONS (2)
  - LIP AND/OR ORAL CAVITY CANCER [None]
  - THYROID CANCER [None]
